FAERS Safety Report 5207491-7 (Version None)
Quarter: 2006Q4

REPORT INFORMATION
  Report Type: 
  Country: None (occurrence: None)
  Receive Date: 20061030
  Receipt Date: 20060719
  Transmission Date: 20070319
  Serious: No
  Sender: FDA-Public Use
  Company Number: 2006CT000531

PATIENT
  Age: 67 Year
  Sex: Female
  Weight: 77.5651 kg

DRUGS (15)
  1. VENTAVIS [Suspect]
     Indication: PULMONARY HYPERTENSION
     Dosage: 5 UG; 6XD; INH; SEE IMAGE
     Route: 055
     Dates: start: 20060411, end: 20060711
  2. VENTAVIS [Suspect]
     Indication: PULMONARY HYPERTENSION
     Dosage: 5 UG; 6XD; INH; SEE IMAGE
     Route: 055
     Dates: start: 20060711, end: 20060912
  3. AMLODIPINE BESYLATE [Concomitant]
  4. TRACLEER [Concomitant]
  5. CALCIUM CARBONATE [Concomitant]
  6. CALCITRIOL [Concomitant]
  7. FLONASE [Concomitant]
  8. PREVACID [Concomitant]
  9. SILDENAFIL CITRATE [Concomitant]
  10. CODEINE PHOSPHATE/GUAIFENESIN [Concomitant]
  11. WARFARIN SODIUM [Concomitant]
  12. NASONEX [Concomitant]
  13. CENTRUM SILVER [Concomitant]
  14. TYLENOL [Concomitant]
  15. ATORVASTATIN CALCIUM [Concomitant]

REACTIONS (12)
  - ABDOMINAL PAIN [None]
  - CHEST DISCOMFORT [None]
  - COUGH [None]
  - DIARRHOEA [None]
  - FATIGUE [None]
  - MUSCLE FATIGUE [None]
  - MUSCLE SPASMS [None]
  - ORAL DISCOMFORT [None]
  - PALPITATIONS [None]
  - RESTLESS LEGS SYNDROME [None]
  - SOMNOLENCE [None]
  - THROAT IRRITATION [None]
